FAERS Safety Report 9506470 (Version 3)
Quarter: 2013Q4

REPORT INFORMATION
  Report Type: Spontaneous
  Country: CZ (occurrence: None)
  Receive Date: 20130904
  Receipt Date: 20131113
  Transmission Date: 20140711
  Serious: Yes (Hospitalization)
  Sender: FDA-Public Use
  Company Number: AUR-APL-2013-07311

PATIENT
  Age: 58 Year
  Sex: Male

DRUGS (9)
  1. CLOPIDOGREL [Suspect]
     Indication: MYOCARDIAL INFARCTION
     Route: 048
     Dates: start: 20130623
  2. ETANERCEPT [Suspect]
     Indication: RHEUMATOID ARTHRITIS
     Dosage: (50 MG, 1 WK), SUBCUTANEOUS
     Route: 058
     Dates: start: 20120614
  3. METHOTREXATE (METHOTREXATE) [Concomitant]
  4. ACIDUM FOLICUM (FOLIC ACID) [Concomitant]
  5. APO-OME (OMEPRAZOLE) [Concomitant]
  6. MEDROL (METHYLPREDNISOLONE) [Concomitant]
  7. MODURETIC (MODURETIC) [Concomitant]
  8. LORISTA (LOSARTAN POTASSIUM) [Concomitant]
  9. IBALGIN (IBUPROFEN) [Concomitant]

REACTIONS (2)
  - Myocardial infarction [None]
  - Coronary artery occlusion [None]
